FAERS Safety Report 9145359 (Version 1)
Quarter: 2013Q1

REPORT INFORMATION
  Report Type: Spontaneous
  Country: US (occurrence: US)
  Receive Date: 20130307
  Receipt Date: 20130307
  Transmission Date: 20140127
  Serious: No
  Sender: FDA-Public Use
  Company Number: US-009507513-1302USA009592

PATIENT
  Sex: Female

DRUGS (9)
  1. EMEND [Suspect]
     Indication: PROPHYLAXIS OF NAUSEA AND VOMITING
     Dosage: 125 MG, ONCE, DAY 1
     Route: 048
  2. EMEND [Suspect]
     Dosage: 80 MG, ONCE, DAY 2
     Route: 048
  3. EMEND [Suspect]
     Dosage: 80 MG, ONCE, DAY 3
     Route: 048
  4. EMEND [Suspect]
     Dosage: 125 MG, ONCE, DAY 1
     Route: 048
  5. EMEND [Suspect]
     Dosage: 80 MG, ONCE, DAY 2
     Route: 048
  6. EMEND [Suspect]
     Dosage: 80 MG, ONCE, DAY 3
     Route: 048
  7. EMEND [Suspect]
     Dosage: 125 MG, ONCE, DAY 1
     Route: 048
  8. EMEND [Suspect]
     Dosage: 80 MG, ONCE, DAY 2
     Route: 048
  9. EMEND [Suspect]
     Dosage: 80 MG, ONCE, DAY 2
     Route: 048

REACTIONS (4)
  - Blood count abnormal [Unknown]
  - Eye pain [Unknown]
  - Pain in extremity [Unknown]
  - Nausea [Unknown]
